FAERS Safety Report 10637449 (Version 1)
Quarter: 2014Q4

REPORT INFORMATION
  Report Type: Spontaneous
  Country: GB (occurrence: None)
  Receive Date: 20141204
  Receipt Date: 20141204
  Transmission Date: 20150529
  Serious: Yes (Other)
  Sender: FDA-Public Use
  Company Number: NL01PV14.38018

PATIENT
  Age: 74 Year
  Sex: Male
  Weight: 84.4 kg

DRUGS (10)
  1. PARACETAMOL [Concomitant]
     Active Substance: ACETAMINOPHEN
  2. MONOMIL (ISOSORBIDE MONITRATE) [Concomitant]
  3. UNKNOWN SIMVASTATIN [Concomitant]
  4. FLUCLOXACILLIN [Concomitant]
     Active Substance: FLUCLOXACILLIN
  5. TAMSULOSIN [Suspect]
     Active Substance: TAMSULOSIN
     Dates: start: 20140717
  6. CORACTEN (NIFEDIPINE) [Concomitant]
  7. HYDROCORTISONE. [Concomitant]
     Active Substance: HYDROCORTISONE
  8. ASPIRIN (ACETYLSALICYLIC ACID) [Concomitant]
     Active Substance: ASPIRIN
  9. GLYCERYL TRINITRATE [Concomitant]
     Active Substance: NITROGLYCERIN
  10. MOMETASONE [Concomitant]
     Active Substance: MOMETASONE

REACTIONS (1)
  - Lichenoid keratosis [None]
